FAERS Safety Report 7415645-4 (Version None)
Quarter: 2011Q2

REPORT INFORMATION
  Report Type: 
  Country: None (occurrence: None)
  Receive Date: 20110414
  Receipt Date: 20110405
  Transmission Date: 20111010
  Serious: Yes (Other)
  Sender: FDA-Public Use
  Company Number: FR-PFIZER INC-2011075672

PATIENT
  Age: 57 Year
  Sex: Female

DRUGS (4)
  1. LYRICA [Suspect]
     Indication: NEURALGIA
     Dosage: UNK
     Dates: start: 20090401
  2. PIASCLEDINE [Concomitant]
     Indication: OSTEOARTHRITIS
  3. CONTRAMAL [Concomitant]
     Indication: OSTEOARTHRITIS
  4. LYRICA [Suspect]
     Dosage: 75 MG IN MORNING, 150 MG IN EVENING

REACTIONS (4)
  - HYPERBILIRUBINAEMIA [None]
  - SOMNOLENCE [None]
  - NAUSEA [None]
  - GAMMA-GLUTAMYLTRANSFERASE INCREASED [None]
